FAERS Safety Report 6894582-8 (Version None)
Quarter: 2010Q3

REPORT INFORMATION
  Report Type: 
  Country: None (occurrence: None)
  Receive Date: 20100802
  Receipt Date: 20100720
  Transmission Date: 20110219
  Serious: Yes (Hospitalization, Other)
  Sender: FDA-Public Use
  Company Number: PHHY2010VE45498

PATIENT
  Sex: Female

DRUGS (5)
  1. ACLASTA [Suspect]
     Indication: OSTEOPOROSIS
     Dosage: 5MG/YEAR
     Route: 042
     Dates: start: 20100501
  2. VITAMINS [Concomitant]
  3. CALCIUM [Concomitant]
  4. FLEXON [Concomitant]
  5. ASCORBIC ACID [Concomitant]

REACTIONS (6)
  - ARTHRITIS [None]
  - BLOOD GLUCOSE INCREASED [None]
  - BRONCHITIS [None]
  - INFLAMMATION [None]
  - INFLUENZA [None]
  - PAIN IN EXTREMITY [None]
